FAERS Safety Report 8364432-1 (Version None)
Quarter: 2012Q2

REPORT INFORMATION
  Report Type: 
  Country: None (occurrence: None)
  Receive Date: 20120516
  Receipt Date: 20120507
  Transmission Date: 20120825
  Serious: Yes (Hospitalization)
  Sender: FDA-Public Use
  Company Number: US-ASTRAZENECA-2012SE29572

PATIENT
  Age: 59 Year
  Sex: Female

DRUGS (2)
  1. ANOTHER MEDICATION [Concomitant]
  2. TOPROL-XL [Suspect]
     Route: 048

REACTIONS (1)
  - HYPOAESTHESIA [None]
